FAERS Safety Report 22295376 (Version 2)
Quarter: 2023Q2

REPORT INFORMATION
  Report Type: Spontaneous
  Country: US (occurrence: US)
  Receive Date: 20230508
  Receipt Date: 20230515
  Transmission Date: 20230722
  Serious: Yes (Other)
  Sender: FDA-Public Use
  Company Number: US-PFIZER INC-PV202300080260

PATIENT
  Age: 70 Year
  Sex: Male

DRUGS (2)
  1. MEKTOVI [Suspect]
     Active Substance: BINIMETINIB
     Indication: Metastatic malignant melanoma
     Dosage: 15 MG
  2. BRAFTOVI [Suspect]
     Active Substance: ENCORAFENIB
     Indication: Metastatic malignant melanoma
     Dosage: 75 MG

REACTIONS (5)
  - Lyme disease [Unknown]
  - Neoplasm progression [Unknown]
  - Abdominal pain [Recovered/Resolved]
  - Nausea [Unknown]
  - Hypoacusis [Not Recovered/Not Resolved]
